FAERS Safety Report 21344915 (Version 2)
Quarter: 2022Q4

REPORT INFORMATION
  Report Type: Report from Study
  Country: US (occurrence: US)
  Receive Date: 20220916
  Receipt Date: 20221108
  Transmission Date: 20230113
  Serious: Yes (Other)
  Sender: FDA-Public Use
  Company Number: US-NOVARTISPH-NVSC2022US206206

PATIENT
  Sex: Female

DRUGS (1)
  1. ENTRESTO [Suspect]
     Active Substance: SACUBITRIL\VALSARTAN
     Indication: Product used for unknown indication
     Dosage: 1 DOSAGE FORM, BID
     Route: 048
     Dates: start: 2022

REACTIONS (6)
  - Intracardiac thrombus [Unknown]
  - Visual impairment [Unknown]
  - Nasal congestion [Unknown]
  - Hypersensitivity [Unknown]
  - Weight increased [Unknown]
  - Fatigue [Unknown]
